APPROVED DRUG PRODUCT: RIVASTIGMINE TARTRATE
Active Ingredient: RIVASTIGMINE TARTRATE
Strength: EQ 6MG BASE
Dosage Form/Route: CAPSULE;ORAL
Application: A077131 | Product #004
Applicant: SUN PHARMACEUTICAL INDUSTRIES LTD
Approved: Oct 22, 2007 | RLD: No | RS: No | Type: DISCN